FAERS Safety Report 9742736 (Version 1)
Quarter: 2013Q4

REPORT INFORMATION
  Report Type: Spontaneous
  Country: US (occurrence: US)
  Receive Date: 20131210
  Receipt Date: 20131210
  Transmission Date: 20140711
  Serious: No
  Sender: FDA-Public Use
  Company Number: US-GILEAD-2009-0025823

PATIENT
  Age: 67 Year
  Sex: Female
  Weight: 107.95 kg

DRUGS (12)
  1. LETAIRIS [Suspect]
     Indication: PULMONARY ARTERIAL HYPERTENSION
     Route: 048
     Dates: start: 20080409, end: 20091202
  2. REVATIO [Concomitant]
  3. COUMADIN [Concomitant]
  4. FOSAMAX [Concomitant]
  5. DETROL [Concomitant]
  6. LIPITOR [Concomitant]
  7. DIOVAN [Concomitant]
  8. IMURAN [Concomitant]
  9. CELEXA [Concomitant]
  10. ACTOS [Concomitant]
  11. ASA [Concomitant]
  12. OMEPRAZOLE [Concomitant]

REACTIONS (2)
  - Fatigue [Recovered/Resolved with Sequelae]
  - Dyspnoea [Recovered/Resolved with Sequelae]
